FAERS Safety Report 6687488-0 (Version None)
Quarter: 2010Q2

REPORT INFORMATION
  Report Type: 
  Country: None (occurrence: None)
  Receive Date: 20100416
  Receipt Date: 20100416
  Transmission Date: 20101027
  Serious: Yes (Other)
  Sender: FDA-Public Use
  Company Number: None

PATIENT
  Age: 30 Year
  Sex: Female
  Weight: 69.4003 kg

DRUGS (2)
  1. LEXAPRO [Suspect]
     Indication: DEPRESSION
     Dates: start: 20100116, end: 20100116
  2. PROTONIX [Suspect]

REACTIONS (6)
  - DIZZINESS [None]
  - DRY MOUTH [None]
  - DRY THROAT [None]
  - FEELING HOT [None]
  - RASH ERYTHEMATOUS [None]
  - TREMOR [None]
